FAERS Safety Report 14604779 (Version 1)
Quarter: 2018Q1

REPORT INFORMATION
  Report Type: Report from Study
  Country: US (occurrence: US)
  Receive Date: 20180306
  Receipt Date: 20180306
  Transmission Date: 20180509
  Serious: Yes (Hospitalization, Other)
  Sender: FDA-Public Use
  Company Number: US-ARALEZ PHARMACEUTICALS R+D INC.-2018-ARA-000440

PATIENT
  Age: 68 Year
  Sex: Female
  Weight: 68.03 kg

DRUGS (16)
  1. LISINOPRIL. [Concomitant]
     Active Substance: LISINOPRIL
     Indication: BLOOD PRESSURE MANAGEMENT
     Dosage: UNK
  2. METHOTREXATE. [Suspect]
     Active Substance: METHOTREXATE
     Indication: RHEUMATOID ARTHRITIS
     Dosage: UNK
  3. GABAPENTIN. [Concomitant]
     Active Substance: GABAPENTIN
     Indication: BACK PAIN
     Dosage: UNK
  4. MECLIZINE [Concomitant]
     Active Substance: MECLIZINE HYDROCHLORIDE
     Indication: MENIERE^S DISEASE
     Dosage: UNK
  5. SOTALOL. [Concomitant]
     Active Substance: SOTALOL
     Indication: SUPRAVENTRICULAR TACHYCARDIA
     Dosage: UNK
  6. TOPROL XL [Suspect]
     Active Substance: METOPROLOL SUCCINATE
     Indication: BLOOD PRESSURE MANAGEMENT
     Dosage: UNK
  7. PLAVIX [Concomitant]
     Active Substance: CLOPIDOGREL BISULFATE
     Dosage: UNK
  8. PLETAL [Concomitant]
     Active Substance: CILOSTAZOL
     Dosage: UNK
  9. PRILOSEC [Concomitant]
     Active Substance: OMEPRAZOLE MAGNESIUM
     Indication: ABDOMINAL DISCOMFORT
     Dosage: UNK
  10. CRESTOR [Concomitant]
     Active Substance: ROSUVASTATIN CALCIUM
     Indication: BLOOD CHOLESTEROL
     Dosage: UNK
  11. BACTRIM [Concomitant]
     Active Substance: SULFAMETHOXAZOLE\TRIMETHOPRIM
     Indication: INFECTION
     Dosage: UNK
  12. INDAPAMIDE. [Concomitant]
     Active Substance: INDAPAMIDE
     Indication: DIURETIC THERAPY
     Dosage: UNK
  13. HUMIRA [Suspect]
     Active Substance: ADALIMUMAB
     Indication: RHEUMATOID ARTHRITIS
     Dosage: 40 MG, 1 IN 2 WK
     Route: 058
     Dates: start: 201503, end: 201710
  14. POTASSIUM [Concomitant]
     Active Substance: POTASSIUM
     Indication: BLOOD POTASSIUM DECREASED
     Dosage: UNK
  15. PREDNISONE. [Concomitant]
     Active Substance: PREDNISONE
     Indication: INFLAMMATION
     Dosage: UNK
  16. FOSAMAX [Concomitant]
     Active Substance: ALENDRONATE SODIUM
     Dosage: UNK

REACTIONS (19)
  - Fall [Recovering/Resolving]
  - Rheumatoid arthritis [Not Recovered/Not Resolved]
  - Arthropathy [Not Recovered/Not Resolved]
  - Wound infection staphylococcal [Unknown]
  - Intervertebral disc protrusion [Recovered/Resolved]
  - Impaired healing [Recovering/Resolving]
  - Spinal cord disorder [Unknown]
  - Necrosis [Unknown]
  - Carotid artery occlusion [Not Recovered/Not Resolved]
  - Spinal column stenosis [Recovering/Resolving]
  - Oxygen saturation decreased [Recovered/Resolved]
  - Pain in extremity [Unknown]
  - Pain in extremity [Recovered/Resolved]
  - Back pain [Unknown]
  - Hypotension [Not Recovered/Not Resolved]
  - Bronchitis [Recovered/Resolved]
  - Bursitis [Recovering/Resolving]
  - Musculoskeletal disorder [Unknown]
  - Arthralgia [Unknown]

NARRATIVE: CASE EVENT DATE: 2015
